FAERS Safety Report 8544160-X (Version None)
Quarter: 2012Q3

REPORT INFORMATION
  Report Type: 
  Country: None (occurrence: None)
  Receive Date: 20120727
  Receipt Date: 20120719
  Transmission Date: 20120928
  Serious: Yes (Hospitalization)
  Sender: FDA-Public Use
  Company Number: GB-PFIZER INC-2012137106

PATIENT
  Age: 60 Year
  Sex: Male

DRUGS (9)
  1. BLINDED NO SUBJECT DRUG [Suspect]
     Indication: ACUTE MYOCARDIAL INFARCTION
     Dosage: UNK
     Route: 048
     Dates: start: 20110914
  2. PLACEBO [Suspect]
     Indication: ACUTE MYOCARDIAL INFARCTION
     Dosage: UNK
     Route: 048
     Dates: start: 20110914
  3. ACETYLSALICYLIC ACID [Concomitant]
     Indication: PROPHYLAXIS
     Dosage: 75 MG, 1X/DAY
     Route: 048
     Dates: start: 20110914
  4. NITROGLYCERIN [Concomitant]
     Indication: ANGINA PECTORIS
     Dosage: 400 UG, AS NEEDED
     Route: 060
     Dates: start: 20110914
  5. RAMIPRIL [Concomitant]
     Indication: PROPHYLAXIS
     Dosage: 1.25 MG, 1X/DAY
     Route: 048
     Dates: start: 20110914
  6. EPLERENONE [Suspect]
     Indication: ACUTE MYOCARDIAL INFARCTION
     Dosage: UNK
     Route: 048
     Dates: start: 20110914
  7. ATORVASTATIN [Suspect]
     Dosage: 80 MG, 1X/DAY
     Route: 048
     Dates: start: 20110914
  8. BISOPROLOL FUMARATE [Suspect]
     Indication: PROPHYLAXIS
     Dosage: 1.25 MG, 1X/DAY
     Route: 048
     Dates: start: 20110914, end: 20120507
  9. PRASUGREL [Concomitant]
     Indication: PROPHYLAXIS
     Dosage: 10 MG, 1X/DAY
     Route: 048
     Dates: start: 20110914

REACTIONS (14)
  - PALPITATIONS [None]
  - MUSCULOSKELETAL PAIN [None]
  - HYPERHIDROSIS [None]
  - DYSPNOEA [None]
  - VERTIGO [None]
  - LETHARGY [None]
  - NAUSEA [None]
  - PHOTOPHOBIA [None]
  - MALAISE [None]
  - HEADACHE [None]
  - SYNCOPE [None]
  - BRADYCARDIA [None]
  - CONFUSIONAL STATE [None]
  - DIZZINESS [None]
